FAERS Safety Report 22600881 (Version 4)
Quarter: 2024Q1

REPORT INFORMATION
  Report Type: Spontaneous
  Country: US (occurrence: US)
  Receive Date: 20230614
  Receipt Date: 20240105
  Transmission Date: 20240409
  Serious: No
  Sender: FDA-Public Use
  Company Number: US-PFIZER INC-PV202300103631

PATIENT
  Age: 7 Year
  Sex: Male

DRUGS (3)
  1. OXBRYTA [Suspect]
     Active Substance: VOXELOTOR
     Dosage: 300 MG, 3X/DAY
     Route: 048
     Dates: start: 202212
  2. OXBRYTA [Suspect]
     Active Substance: VOXELOTOR
     Dosage: 900 MG, 1X/DAY [300 MG/3 TABLETS FOR ORAL SUSPENSION BY MOUTH ONCE DAILY]
     Route: 048
  3. OXBRYTA [Suspect]
     Active Substance: VOXELOTOR
     Dosage: 900 MG, 1X/DAY ((300MG/3 TABLETS FOR ORAL SUSPENSION BY MOUTH ONCE DAILY)
     Route: 048

REACTIONS (2)
  - Acne [Unknown]
  - Off label use [Unknown]

NARRATIVE: CASE EVENT DATE: 20221201
